FAERS Safety Report 13891040 (Version 1)
Quarter: 2017Q3

REPORT INFORMATION
  Report Type: Spontaneous
  Country: US (occurrence: US)
  Receive Date: 20170822
  Receipt Date: 20170822
  Transmission Date: 20171127
  Serious: Yes (Hospitalization)
  Sender: FDA-Public Use
  Company Number: US-ACCORD-057259

PATIENT
  Age: 78 Year
  Sex: Female

DRUGS (5)
  1. PROTONIX [Suspect]
     Active Substance: PANTOPRAZOLE SODIUM
     Indication: GASTROOESOPHAGEAL REFLUX DISEASE
     Dosage: MAH: CAMBER PHARMA
     Route: 048
     Dates: start: 20170623
  2. PLAVIX [Suspect]
     Active Substance: CLOPIDOGREL BISULFATE
     Indication: ANTIPHOSPHOLIPID SYNDROME
     Dosage: 75 MG TABLET ONCE A DAY?CLOPIDOGREL ACCORD
     Route: 048
     Dates: start: 2006, end: 201706
  3. SIMVASTATIN. [Suspect]
     Active Substance: SIMVASTATIN
     Indication: BLOOD CHOLESTEROL
     Route: 048
     Dates: start: 2011, end: 201706
  4. MELOXICAM. [Suspect]
     Active Substance: MELOXICAM
     Indication: ARTHROPATHY
     Dosage: 15 MG AT NIGHT
     Route: 048
     Dates: start: 2006, end: 201706
  5. ACETYLSALICYLIC ACID [Suspect]
     Active Substance: ASPIRIN
     Indication: ANTICOAGULANT THERAPY
     Dosage: 81 MG AT NIGHT
     Route: 048
     Dates: start: 2006, end: 201706

REACTIONS (4)
  - Product label issue [Unknown]
  - Ulcer haemorrhage [Unknown]
  - Off label use [Unknown]
  - Pruritus [Not Recovered/Not Resolved]

NARRATIVE: CASE EVENT DATE: 20170630
